FAERS Safety Report 16113321 (Version 1)
Quarter: 2019Q1

REPORT INFORMATION
  Report Type: Spontaneous
  Country: US (occurrence: US)
  Receive Date: 20190325
  Receipt Date: 20190325
  Transmission Date: 20190418
  Serious: Yes (Hospitalization, Other)
  Sender: FDA-Public Use
  Company Number: US-PFIZER INC-2019120873

PATIENT
  Age: 68 Year
  Sex: Female

DRUGS (19)
  1. KEFLEX [Concomitant]
     Active Substance: CEPHALEXIN
     Indication: DENTAL CARE
     Dosage: 2000 MG, UNK(AS DIRECTED: FOR: BEFORE DENTAL PROCEDURE)
     Route: 048
  2. SYMBICORT [Concomitant]
     Active Substance: BUDESONIDE\FORMOTEROL FUMARATE DIHYDRATE
     Dosage: 2X/DAY(2 PUFFS INTO MOUTH/LUNGS )
  3. OXYGEN. [Concomitant]
     Active Substance: OXYGEN
     Dosage: LIFETIME
     Route: 045
  4. PRINIVIL [Concomitant]
     Active Substance: LISINOPRIL
     Dosage: 20 MG, DAILY
     Route: 048
  5. ZESTRIL [Concomitant]
     Active Substance: LISINOPRIL
     Dosage: 20 MG, DAILY
     Route: 048
  6. COMPAZINE [Concomitant]
     Active Substance: PROCHLORPERAZINE MALEATE
     Indication: NAUSEA
     Dosage: 10 MG, AS NEEDED(EVERY 6 HOURS AS NEEDED)
     Route: 048
  7. VENTOLIN HFA [Concomitant]
     Active Substance: ALBUTEROL SULFATE
     Indication: WHEEZING
     Dosage: 180 UG, AS NEEDED (INHALE 2 PUFFS INTO MOUTH/LUNGS EVERY 6 HOURS)
  8. CALTRATE WITH VITAMIN D [Concomitant]
     Active Substance: CALCIUM CARBONATE\CHOLECALCIFEROL
     Dosage: 2 DF, DAILY (600-400 (CALTRATE 600 PLUS) 600 MG(1,500MG) -400 UNIT TABLET)
     Route: 048
  9. EMLA [Concomitant]
     Active Substance: LIDOCAINE\PRILOCAINE
     Dosage: (APPLY TO PORT SITE 45 MINUTES PRIOR TO ACCESSING) ([LIDOCAINE: 2.5%]/ [PRILOCAINE: 2.5%]
  10. ULTRAM [Concomitant]
     Active Substance: TRAMADOL HYDROCHLORIDE
     Indication: PAIN
     Dosage: AS NEEDED(TAKE 1-2 TABS (50-100 MG) BY MOUTH 2 TIMES DAILY AS NEEDED)
     Route: 048
  11. VITAMIN D3 [Concomitant]
     Active Substance: CHOLECALCIFEROL
     Dosage: 2000 IU, DAILY
     Route: 048
  12. IMODIUM [Concomitant]
     Active Substance: LOPERAMIDE HYDROCHLORIDE
     Indication: DIARRHOEA
     Dosage: 2 MG, AS NEEDED
     Route: 048
  13. VITAMIN C [Concomitant]
     Active Substance: ASCORBIC ACID
     Dosage: 1000 MG, DAILY
     Route: 048
  14. LORTAB [Concomitant]
     Active Substance: ACETAMINOPHEN\HYDROCODONE BITARTRATE
     Indication: PAIN
     Dosage: 1 DF, AS NEEDED(EVERY 6 HOURS AS NEEDED) [HYDROCODONE:10MG]/ [PARACETAMOL: 325MG]
     Route: 048
  15. ZOFRAN [Concomitant]
     Active Substance: ONDANSETRON HYDROCHLORIDE
     Indication: NAUSEA
     Dosage: 8 MG, AS NEEDED(EVERY 8 HOURS AS NEEDED)(STARTING 48 HOURS AFTER CHEMOTHERAPY)
     Route: 048
  16. LEXAPRO [Concomitant]
     Active Substance: ESCITALOPRAM OXALATE
     Indication: PANIC DISORDER
     Dosage: 40 MG, DAILY (TAKE 2 TABS (20 MG) BY MOUTH DAILY FOR 30 DAYS)
     Route: 048
  17. CRIZOTINIB [Suspect]
     Active Substance: CRIZOTINIB
     Indication: BREAST CANCER METASTATIC
     Dosage: 250 MG, 2X/DAY
     Route: 048
     Dates: start: 20180523, end: 20180912
  18. MAGNESIUM OXIDE. [Concomitant]
     Active Substance: MAGNESIUM OXIDE
     Dosage: 400 MG, DAILY
     Route: 048
  19. SPIRIVA [Concomitant]
     Active Substance: TIOTROPIUM BROMIDE MONOHYDRATE
     Dosage: 1.25 UG, DAILY (TAKE 1 PUFF BY MOUTH DAILY)
     Route: 048

REACTIONS (3)
  - Product use in unapproved indication [Unknown]
  - Dyspnoea [Recovering/Resolving]
  - Pneumonitis [Unknown]

NARRATIVE: CASE EVENT DATE: 201809
